FAERS Safety Report 6402219-7 (Version None)
Quarter: 2009Q4

REPORT INFORMATION
  Report Type: 
  Country: None (occurrence: None)
  Receive Date: 20091015
  Receipt Date: 20090410
  Transmission Date: 20100525
  Serious: Yes (Death)
  Sender: FDA-Public Use
  Company Number: PHEH2009US03353

PATIENT
  Sex: Female
  Weight: 61.6 kg

DRUGS (12)
  1. TEKTURNA [Suspect]
     Indication: HYPERTENSION
     Dosage: 300 MG, QD
     Route: 048
     Dates: start: 20090307, end: 20090309
  2. CARDURA                                 /IRE/ [Concomitant]
     Dosage: 7 MG, BID
     Dates: start: 20090206, end: 20090309
  3. ZYRTEC [Concomitant]
     Dosage: 10 MG, BID
  4. NYSTATIN [Concomitant]
  5. ISORDIL [Concomitant]
     Dosage: 20 MG, TID
  6. CLONIDINE [Concomitant]
     Dosage: .02 MG, TID
  7. CLONIDINE [Concomitant]
     Dosage: 0.1 MG, BID
     Dates: end: 20090309
  8. COREG [Concomitant]
     Dosage: 12.5 MG, BID
  9. ASPIRIN [Concomitant]
     Dosage: 81 MG, QD
  10. BUDESONIDE [Concomitant]
  11. COZAAR [Concomitant]
     Dosage: 100 MG, UNK
  12. LACTULOSE [Concomitant]
     Dosage: 30 MG, QD

REACTIONS (1)
  - ARTERIOSCLEROSIS [None]
